FAERS Safety Report 13749123 (Version 1)
Quarter: 2017Q3

REPORT INFORMATION
  Report Type: Spontaneous
  Country: US (occurrence: US)
  Receive Date: 20170713
  Receipt Date: 20170713
  Transmission Date: 20171127
  Serious: Yes (Other)
  Sender: FDA-Public Use
  Company Number: US-PFIZER INC-2017299123

PATIENT
  Age: 61 Year
  Sex: Female

DRUGS (2)
  1. XELJANZ XR [Suspect]
     Active Substance: TOFACITINIB CITRATE
     Dosage: 11 MG, UNK
  2. GABAPENTIN. [Suspect]
     Active Substance: GABAPENTIN
     Dosage: 500 MG, 3X/DAY
     Route: 048

REACTIONS (21)
  - Impaired gastric emptying [Unknown]
  - Arthralgia [Unknown]
  - Ear disorder [Unknown]
  - Diaphragmatic paralysis [Unknown]
  - Dyspnoea [Unknown]
  - Musculoskeletal stiffness [Unknown]
  - Fear of injection [Unknown]
  - Bone swelling [Unknown]
  - Fatigue [Unknown]
  - Wheezing [Unknown]
  - Joint swelling [Unknown]
  - Diverticulitis [Unknown]
  - Pneumothorax spontaneous [Unknown]
  - Cytomegalovirus infection [Unknown]
  - Exostosis [Unknown]
  - Nocturnal dyspnoea [Unknown]
  - Dyspepsia [Unknown]
  - Abdominal pain [Unknown]
  - Large intestine perforation [Unknown]
  - Pain in extremity [Unknown]
  - Malaise [Unknown]
